FAERS Safety Report 5964465-6 (Version None)
Quarter: 2008Q4

REPORT INFORMATION
  Report Type: 
  Country: None (occurrence: None)
  Receive Date: 20081124
  Receipt Date: 20081124
  Transmission Date: 20090506
  Serious: Yes (Death, Hospitalization)
  Sender: FDA-Public Use
  Company Number: None

PATIENT
  Age: 88 Year
  Sex: Male
  Weight: 70 kg

DRUGS (6)
  1. ISOSORBID 60 MG ETHEX [Suspect]
     Indication: BLOOD PRESSURE
     Dosage: 1 PILL 1/DAY PO
  2. ISOSORBID 60 MG ETHEX [Suspect]
     Indication: CARDIAC DISORDER
     Dosage: 1 PILL 1/DAY PO
  3. PROSCAR [Concomitant]
  4. FLOMAX [Concomitant]
  5. QUINOPRIL [Concomitant]
  6. VITAMINES [Concomitant]

REACTIONS (13)
  - ACTIVITIES OF DAILY LIVING IMPAIRED [None]
  - APALLIC SYNDROME [None]
  - ASTHENIA [None]
  - BALANCE DISORDER [None]
  - BRAIN INJURY [None]
  - CARDIAC ARREST [None]
  - COMA [None]
  - DIZZINESS POSTURAL [None]
  - FATIGUE [None]
  - HEART RATE DECREASED [None]
  - HYPOVENTILATION [None]
  - LOSS OF CONSCIOUSNESS [None]
  - UNRESPONSIVE TO STIMULI [None]
